FAERS Safety Report 8014494-6 (Version None)
Quarter: 2011Q4

REPORT INFORMATION
  Report Type: 
  Country: None (occurrence: None)
  Receive Date: 20111223
  Receipt Date: 20111207
  Transmission Date: 20120403
  Serious: Yes (Other)
  Sender: FDA-Public Use
  Company Number: 2011AP002270

PATIENT
  Age: 8 Year
  Sex: Male

DRUGS (4)
  1. CARBAMAZEPINE [Suspect]
  2. LEVETIRACETAM [Suspect]
  3. VALPROIC ACID [Suspect]
  4. LAMOTRIGINE [Suspect]

REACTIONS (8)
  - VISUAL IMPAIRMENT [None]
  - ANXIETY [None]
  - PERFORMANCE STATUS DECREASED [None]
  - MENTAL RETARDATION [None]
  - LETHARGY [None]
  - ANGER [None]
  - FATIGUE [None]
  - ATAXIA [None]
